FAERS Safety Report 25573903 (Version 4)
Quarter: 2025Q4

REPORT INFORMATION
  Report Type: Report from Study
  Country: EU (occurrence: EU)
  Receive Date: 20250717
  Receipt Date: 20251216
  Transmission Date: 20260117
  Serious: Yes (Death, Hospitalization)
  Sender: TRAVERE THERAPEUTICS
  Company Number: EU-BEH-2025212952

PATIENT
  Age: 61 Year
  Sex: Male

DRUGS (2)
  1. FILSPARI [Suspect]
     Active Substance: SPARSENTAN
     Indication: Proteinuria
     Dosage: 200 MG (4 TABLETS USED)
     Route: 065
     Dates: start: 20250705
  2. FILSPARI [Suspect]
     Active Substance: SPARSENTAN
     Indication: Renal impairment

REACTIONS (3)
  - Death [Fatal]
  - Chest pain [Fatal]
  - Cold sweat [Fatal]

NARRATIVE: CASE EVENT DATE: 20250709
